FAERS Safety Report 13405649 (Version 2)
Quarter: 2017Q2

REPORT INFORMATION
  Report Type: Spontaneous
  Country: US (occurrence: US)
  Receive Date: 20170405
  Receipt Date: 20170504
  Transmission Date: 20170830
  Serious: No
  Sender: FDA-Public Use
  Company Number: US-PFIZER INC-2017146176

PATIENT
  Age: 24 Year
  Sex: Female

DRUGS (16)
  1. BENZOYL PEROXIDE. [Concomitant]
     Active Substance: BENZOYL PEROXIDE
     Dosage: UNK, DAILY
     Route: 061
     Dates: start: 20160726
  2. PYRIDIUM [Concomitant]
     Active Substance: PHENAZOPYRIDINE
     Indication: BLADDER PAIN
  3. NASONEX [Concomitant]
     Active Substance: MOMETASONE FUROATE
     Dosage: 2 DF (2 SPRAYS EACH NOSTRIL), 1X/DAY
     Route: 045
     Dates: start: 20150317
  4. VITAMIN D3 [Concomitant]
     Active Substance: CHOLECALCIFEROL
     Dosage: 1000 IU
     Route: 048
  5. METAMUCIL [Concomitant]
     Active Substance: PLANTAGO SEED
     Dosage: 1 DF (1 WAFER), 2X/DAY
     Route: 048
     Dates: start: 20161219
  6. BACTROBAN [Concomitant]
     Active Substance: MUPIROCIN\MUPIROCIN CALCIUM
     Indication: WOUND
     Dosage: UNK, 2X/DAY
     Route: 061
     Dates: start: 20161107
  7. TOPAMAX [Concomitant]
     Active Substance: TOPIRAMATE
     Dosage: 50 MG, 3X/DAY
     Route: 048
  8. GENOTROPIN MQ [Suspect]
     Active Substance: SOMATROPIN
     Indication: PRADER-WILLI SYNDROME
     Dosage: 0.8 MG, DAILY
  9. CORTEF [Concomitant]
     Active Substance: HYDROCORTISONE
     Indication: SURGERY
     Dosage: 10 MG, AS NEEDED (1 TABLET 3 TIMES DAILY)
     Route: 048
     Dates: start: 20150930
  10. CULTURELLE [Concomitant]
     Active Substance: LACTOBACILLUS RHAMNOSUS
     Indication: GASTROINTESTINAL TOXICITY
     Dosage: 1 DF (1 CAPSULE), 2X/DAY
     Route: 048
     Dates: start: 20160907
  11. GENOTROPIN MQ [Suspect]
     Active Substance: SOMATROPIN
     Indication: HYPOPITUITARISM
     Dosage: 0.6 MG, 1X/DAY (NIGHTLY AT BEDTIME)
     Route: 058
     Dates: start: 20151031
  12. ZYRTEC [Concomitant]
     Active Substance: CETIRIZINE HYDROCHLORIDE
     Dosage: 10 MG, DAILY
     Route: 048
  13. PROZAC [Concomitant]
     Active Substance: FLUOXETINE HYDROCHLORIDE
     Dosage: 40 MG, DAILY
     Route: 048
  14. PYRIDIUM [Concomitant]
     Active Substance: PHENAZOPYRIDINE
     Indication: DYSURIA
     Dosage: 200 MG (1 TABLET), AS NEEDED (3 TIMES DAILY)
     Route: 048
     Dates: start: 20160705
  15. CORTEF [Concomitant]
     Active Substance: HYDROCORTISONE
     Indication: PYREXIA
  16. RISPERDAL [Concomitant]
     Active Substance: RISPERIDONE
     Dosage: 3 MG, DAILY
     Route: 048

REACTIONS (3)
  - Condition aggravated [Unknown]
  - Weight increased [Unknown]
  - Dermatillomania [Unknown]
